FAERS Safety Report 6013090-X (Version None)
Quarter: 2008Q4

REPORT INFORMATION
  Report Type: 
  Country: None (occurrence: None)
  Receive Date: 20081217
  Receipt Date: 20081204
  Transmission Date: 20090506
  Serious: Yes (Disabling, Other)
  Sender: FDA-Public Use
  Company Number: 038188

PATIENT
  Age: 85 Year
  Sex: Female

DRUGS (7)
  1. PAMIDRONATE DISODIUM [Suspect]
     Indication: BREAST CANCER METASTATIC
     Dosage: 90 MG, Q4WEEKS, INTRAVENOUS
     Route: 042
  2. ARIMIDEX [Concomitant]
  3. MEGACE [Concomitant]
  4. XALATAN [Concomitant]
  5. COSOPT [Concomitant]
  6. PROCRIT [Concomitant]
  7. DIOVAN [Concomitant]

REACTIONS (6)
  - BLOOD CREATININE INCREASED [None]
  - ESCHERICHIA INFECTION [None]
  - OSTEOMYELITIS [None]
  - OSTEONECROSIS [None]
  - PEPTOSTREPTOCOCCUS INFECTION [None]
  - SINUSITIS [None]
